FAERS Safety Report 5669282-2 (Version None)
Quarter: 2008Q1

REPORT INFORMATION
  Report Type: 
  Country: None (occurrence: None)
  Receive Date: 20080313
  Receipt Date: 20080313
  Transmission Date: 20080703
  Serious: Yes (Hospitalization)
  Sender: FDA-Public Use
  Company Number: None

PATIENT
  Sex: Female
  Weight: 44.5 kg

DRUGS (9)
  1. CARBOPLATIN [Suspect]
     Dosage: 505 MG
     Dates: end: 20080219
  2. TAXOL [Suspect]
     Dosage: 277 MG
     Dates: end: 20080219
  3. ATIVAN [Concomitant]
  4. TRAMADOL HCL [Concomitant]
  5. ZOFRAN [Concomitant]
  6. AMPICILLIN [Concomitant]
  7. ESTROGEN [Concomitant]
  8. LOMOTIL [Concomitant]
  9. XANAX [Concomitant]

REACTIONS (10)
  - BLOOD ALDOSTERONE DECREASED [None]
  - DEHYDRATION [None]
  - FATIGUE [None]
  - HYDRONEPHROSIS [None]
  - HYPERHIDROSIS [None]
  - LOSS OF CONSCIOUSNESS [None]
  - ORTHOSTATIC HYPOTENSION [None]
  - TREMOR [None]
  - URINARY TRACT INFECTION BACTERIAL [None]
  - WEIGHT INCREASED [None]
